FAERS Safety Report 15641523 (Version 1)
Quarter: 2018Q4

REPORT INFORMATION
  Report Type: Spontaneous
  Country: AT (occurrence: AT)
  Receive Date: 20181120
  Receipt Date: 20181120
  Transmission Date: 20190205
  Serious: Yes (Death, Other)
  Sender: FDA-Public Use
  Company Number: AT-BAXTER-2018BAX028463

PATIENT
  Sex: Male

DRUGS (2)
  1. PHYSIONEAL 35 GLUCOSE 2,27% W/V/22,7 MG/ML CLEAR-FLEX - PERITONEALDIAL [Suspect]
     Active Substance: CALCIUM CHLORIDE\DEXTROSE\MAGNESIUM CHLORIDE\SODIUM CHLORIDE
     Indication: PERITONEAL DIALYSIS
     Route: 033
  2. EXTRANEAL [Suspect]
     Active Substance: CALCIUM CHLORIDE\ICODEXTRIN\MAGNESIUM CHLORIDE\SODIUM CHLORIDE\SODIUM LACTATE
     Indication: PERITONEAL DIALYSIS
     Route: 033

REACTIONS (4)
  - Cardiac arrest [Fatal]
  - Fall [Unknown]
  - Post procedural complication [Fatal]
  - Femur fracture [Unknown]

NARRATIVE: CASE EVENT DATE: 20181102
